FAERS Safety Report 6980341-4 (Version None)
Quarter: 2010Q3

REPORT INFORMATION
  Report Type: 
  Country: None (occurrence: None)
  Receive Date: 20100914
  Receipt Date: 20100909
  Transmission Date: 20110219
  Serious: Yes (Death)
  Sender: FDA-Public Use
  Company Number: AR-ROCHE-726312

PATIENT
  Sex: Male

DRUGS (3)
  1. CAPECITABINE [Suspect]
     Indication: GASTRIC CANCER
     Dosage: FREQUENCY : DAILY
     Route: 048
     Dates: start: 20100414, end: 20100701
  2. EPIDOXORUBICINA [Concomitant]
     Dates: start: 20100414, end: 20100701
  3. OXALIPLATIN [Concomitant]
     Dosage: REPORTED AS OXALIPLATINI
     Dates: start: 20100414, end: 20100701

REACTIONS (1)
  - HEPATIC FAILURE [None]
